FAERS Safety Report 10024301 (Version 2)
Quarter: 2014Q1

REPORT INFORMATION
  Report Type: Spontaneous
  Country: TR (occurrence: TR)
  Receive Date: 20140320
  Receipt Date: 20140328
  Transmission Date: 20141002
  Serious: Yes (Death, Hospitalization)
  Sender: FDA-Public Use
  Company Number: TR-PFIZER INC-2014077605

PATIENT
  Age: 69 Year
  Sex: Male
  Weight: 45 kg

DRUGS (3)
  1. XALKORI [Suspect]
     Dosage: UNK
     Dates: start: 20131210, end: 20131225
  2. LAMIVUDINE [Concomitant]
  3. DEXAMETHASONE [Concomitant]

REACTIONS (2)
  - Pulmonary embolism [Fatal]
  - Hepatic function abnormal [Unknown]
